FAERS Safety Report 17106097 (Version 1)
Quarter: 2019Q4

REPORT INFORMATION
  Report Type: Spontaneous
  Country: US (occurrence: US)
  Receive Date: 20191203
  Receipt Date: 20191203
  Transmission Date: 20200122
  Serious: No
  Sender: FDA-Public Use
  Company Number: US-NOVOPROD-697252

PATIENT
  Age: 72 Year
  Sex: Female

DRUGS (1)
  1. XULTOPHY 100/3.6 [Suspect]
     Active Substance: INSULIN DEGLUDEC\LIRAGLUTIDE
     Indication: TYPE 1 DIABETES MELLITUS
     Dosage: 15 UNITS
     Route: 058
     Dates: start: 20191013, end: 20191014

REACTIONS (3)
  - Vomiting [Recovered/Resolved]
  - Dyspepsia [Recovered/Resolved]
  - Expired product administered [Unknown]

NARRATIVE: CASE EVENT DATE: 201910
